FAERS Safety Report 18113364 (Version 1)
Quarter: 2020Q3

REPORT INFORMATION
  Report Type: Spontaneous
  Country: IT (occurrence: IT)
  Receive Date: 20200805
  Receipt Date: 20200805
  Transmission Date: 20201103
  Serious: Yes (Hospitalization)
  Sender: FDA-Public Use
  Company Number: IT-HIKMA PHARMACEUTICALS USA INC.-IT-H14001-20-51831

PATIENT
  Age: 57 Year
  Sex: Female
  Weight: 70 kg

DRUGS (3)
  1. METHYLPREDNISOLONE. [Suspect]
     Active Substance: METHYLPREDNISOLONE
     Indication: BURSITIS
     Route: 014
     Dates: start: 20200715, end: 20200715
  2. NIMESULIDE [Concomitant]
     Active Substance: NIMESULIDE
     Indication: BONE PAIN
     Route: 065
     Dates: start: 20200713, end: 20200715
  3. LIDOCAINE. [Suspect]
     Active Substance: LIDOCAINE
     Indication: BURSITIS
     Route: 014
     Dates: start: 20200715, end: 20200715

REACTIONS (1)
  - Dysstasia [Recovered/Resolved]

NARRATIVE: CASE EVENT DATE: 20200715
